FAERS Safety Report 18915676 (Version 1)
Quarter: 2021Q1

REPORT INFORMATION
  Report Type: Spontaneous
  Country: US (occurrence: US)
  Receive Date: 20210219
  Receipt Date: 20210219
  Transmission Date: 20210420
  Serious: Yes (Other)
  Sender: FDA-Public Use
  Company Number: None

PATIENT
  Age: 35 Year
  Sex: Female

DRUGS (2)
  1. LEVOTHYROXINE. [Concomitant]
     Active Substance: LEVOTHYROXINE
  2. TOPIRAMATE. [Suspect]
     Active Substance: TOPIRAMATE
     Indication: POST-TRAUMATIC STRESS DISORDER
     Route: 048
     Dates: start: 20210212, end: 20210218

REACTIONS (8)
  - Skin burning sensation [None]
  - Lymphadenopathy [None]
  - Myalgia [None]
  - Headache [None]
  - Neck pain [None]
  - Hypersensitivity [None]
  - Blood pressure increased [None]
  - Swelling [None]

NARRATIVE: CASE EVENT DATE: 20210218
